FAERS Safety Report 8946853 (Version 1)
Quarter: 2012Q4

REPORT INFORMATION
  Report Type: 
  Country: MX (occurrence: MX)
  Receive Date: 20121205
  Receipt Date: 20121205
  Transmission Date: 20130627
  Serious: Yes (Death)
  Sender: FDA-Public Use
  Company Number: MX-GLAXOSMITHKLINE-A1003931A

PATIENT
  Sex: Male
  Weight: 70 kg

DRUGS (10)
  1. AVODART [Suspect]
     Indication: BENIGN PROSTATIC HYPERPLASIA
     Route: 065
     Dates: end: 201006
  2. OMEPRAZOL [Concomitant]
     Indication: GASTRITIS
  3. DARVON [Concomitant]
     Indication: PAIN
  4. TECNOVID [Concomitant]
  5. ACETAMINOPHEN [Concomitant]
  6. UNSPECIFIED MEDICATION [Concomitant]
  7. VENALOT DEPOT DRAGEES [Concomitant]
  8. FUROSEMIDE [Concomitant]
  9. CIPROFLOXACIN [Concomitant]
  10. CLONAZEPAM [Concomitant]

REACTIONS (1)
  - Lung neoplasm [Fatal]
